FAERS Safety Report 11242095 (Version 1)
Quarter: 2015Q3

REPORT INFORMATION
  Report Type: Spontaneous
  Country: TR (occurrence: TR)
  Receive Date: 20150706
  Receipt Date: 20150706
  Transmission Date: 20151125
  Serious: Yes (Hospitalization)
  Sender: FDA-Public Use
  Company Number: TR-TAKEDA-2015TUS008538

PATIENT
  Sex: Male

DRUGS (6)
  1. ANAKINRA [Concomitant]
     Active Substance: ANAKINRA
     Dosage: 2 MG/KG, QD
     Route: 058
  2. ANAKINRA [Concomitant]
     Active Substance: ANAKINRA
     Dosage: 3 MG/KG, QD
     Route: 058
  3. CANAKINUMAB [Concomitant]
     Active Substance: CANAKINUMAB
     Dosage: 2 MG/KG, MONTHLY
     Route: 065
  4. ANAKINRA [Concomitant]
     Active Substance: ANAKINRA
     Indication: FAMILIAL MEDITERRANEAN FEVER
     Dosage: 1 MG/KG, QD
     Route: 058
  5. COLCHICINE. [Suspect]
     Active Substance: COLCHICINE
     Dosage: 2 MG, QD
     Route: 065
  6. COLCHICINE. [Suspect]
     Active Substance: COLCHICINE
     Indication: FAMILIAL MEDITERRANEAN FEVER
     Dosage: UNK
     Route: 065

REACTIONS (1)
  - Drug resistance [Unknown]
